FAERS Safety Report 17006250 (Version 1)
Quarter: 2019Q4

REPORT INFORMATION
  Report Type: Spontaneous
  Country: GB (occurrence: GB)
  Receive Date: 20191107
  Receipt Date: 20191107
  Transmission Date: 20200122
  Serious: Yes (Other)
  Sender: FDA-Public Use
  Company Number: GB-PERRIGO-19GB013050

PATIENT
  Age: 64 Year
  Sex: Female
  Weight: 63.5 kg

DRUGS (1)
  1. COLD RELIEF CAPSULES 12063/0003 [Suspect]
     Active Substance: ACETAMINOPHEN\CAFFEINE\PHENYLEPHRINE HYDROCHLORIDE
     Indication: OROPHARYNGEAL PAIN
     Dosage: 6 CAPSULES TOTAL, WITH 4 HOURS IN-BETWEEN EACH DOSE
     Route: 048
     Dates: start: 20171228, end: 20171229

REACTIONS (4)
  - Malaise [Recovering/Resolving]
  - Retching [Recovering/Resolving]
  - Diarrhoea [Recovering/Resolving]
  - Abdominal pain upper [Recovering/Resolving]

NARRATIVE: CASE EVENT DATE: 20171228
